FAERS Safety Report 9114896 (Version 1)
Quarter: 2013Q1

REPORT INFORMATION
  Report Type: Spontaneous
  Country: PT (occurrence: None)
  Receive Date: 20130123
  Receipt Date: 20130123
  Transmission Date: 20140127
  Serious: Yes (Other)
  Sender: FDA-Public Use
  Company Number: ALB-007-11-PT

PATIENT
  Age: 48 Year
  Sex: Male

DRUGS (6)
  1. ALBUNORM [Suspect]
     Indication: PARACENTESIS
     Route: 042
     Dates: start: 20111215, end: 201112
  2. PARACETAMOL [Concomitant]
  3. OXAZEPAM [Concomitant]
  4. SPIRONOLACTONE [Concomitant]
  5. FOLIC ACID [Concomitant]
  6. FUROSEMIDE [Concomitant]

REACTIONS (1)
  - Rash macular [None]
